FAERS Safety Report 4931517-9 (Version None)
Quarter: 2006Q1

REPORT INFORMATION
  Report Type: 
  Country: None (occurrence: None)
  Receive Date: 20060303
  Receipt Date: 20060220
  Transmission Date: 20060701
  Serious: Yes (Life-Threatening, Hospitalization)
  Sender: FDA-Public Use
  Company Number: PHFR2006GB00899

PATIENT
  Age: 14 Year
  Sex: Female
  Weight: 40 kg

DRUGS (3)
  1. DICLOFENAC [Suspect]
     Dosage: 75 MG X14 TABLETS OVERDOSE
     Route: 048
  2. METFORMIN (NGX) [Suspect]
     Dosage: 500 MG X126 TABLETS OVERDOSE
     Route: 048
  3. ATENOLOL [Suspect]
     Dosage: 50 MG X 28 TABLETS OVERDOSE
     Route: 048

REACTIONS (8)
  - DEPRESSED LEVEL OF CONSCIOUSNESS [None]
  - GLASGOW COMA SCALE ABNORMAL [None]
  - HYPOGLYCAEMIA [None]
  - HYPOTENSION [None]
  - LACTIC ACIDOSIS [None]
  - METABOLIC ACIDOSIS [None]
  - OVERDOSE [None]
  - RESPIRATORY RATE INCREASED [None]
